FAERS Safety Report 10189081 (Version 2)
Quarter: 2014Q3

REPORT INFORMATION
  Report Type: Report from Study
  Country: FR (occurrence: FR)
  Receive Date: 20140522
  Receipt Date: 20140805
  Transmission Date: 20150326
  Serious: Yes (Other)
  Sender: FDA-Public Use
  Company Number: PHHY2014FR060700

PATIENT
  Age: 72 Year
  Sex: Female
  Weight: 63 kg

DRUGS (5)
  1. TAMOXIFENE [Concomitant]
     Active Substance: TAMOXIFEN
     Dates: start: 2010
  2. OGASTORO [Concomitant]
     Active Substance: LANSOPRAZOLE
     Dates: start: 2013
  3. ACLASTA [Suspect]
     Active Substance: ZOLEDRONIC ACID
     Indication: OSTEOPOROSIS
     Dates: start: 201109
  4. PREVISCAN [Concomitant]
     Active Substance: FLUINDIONE
     Dates: start: 2010
  5. RASILEZ [Concomitant]
     Active Substance: ALISKIREN
     Dates: start: 2010, end: 201311

REACTIONS (3)
  - Dental caries [Recovered/Resolved]
  - Spinal fracture [Unknown]
  - Tooth avulsion [Recovered/Resolved]

NARRATIVE: CASE EVENT DATE: 2012
